FAERS Safety Report 7518955-5 (Version None)
Quarter: 2011Q2

REPORT INFORMATION
  Report Type: 
  Country: None (occurrence: None)
  Receive Date: 20110602
  Receipt Date: 20110524
  Transmission Date: 20111010
  Serious: Yes (Hospitalization)
  Sender: FDA-Public Use
  Company Number: US-AMGEN-USASP2011027189

PATIENT
  Age: 66 Year
  Sex: Female

DRUGS (1)
  1. ENBREL [Suspect]
     Indication: RHEUMATOID ARTHRITIS
     Dosage: 25 MG, 2 TIMES/WK
     Dates: start: 20090501

REACTIONS (5)
  - MYOCARDIAL INFARCTION [None]
  - FOOT DEFORMITY [None]
  - CATARACT [None]
  - INJECTION SITE DISCOMFORT [None]
  - RENAL ARTERY STENT PLACEMENT [None]
